FAERS Safety Report 7820822-4 (Version None)
Quarter: 2011Q4

REPORT INFORMATION
  Report Type: 
  Country: None (occurrence: None)
  Receive Date: 20111018
  Receipt Date: 20111007
  Transmission Date: 20120403
  Serious: Yes (Hospitalization)
  Sender: FDA-Public Use
  Company Number: US-ELI_LILLY_AND_COMPANY-US201110003004

PATIENT
  Age: 64 Year
  Sex: Male

DRUGS (5)
  1. EFFIENT [Suspect]
     Indication: THROMBOSIS
     Dosage: 10 MG, QD
  2. SIMVASTATIN [Concomitant]
     Dosage: UNK, UNKNOWN
  3. LOPRESSOR [Concomitant]
     Dosage: UNK, UNKNOWN
  4. DIOVAN [Concomitant]
     Dosage: UNK, UNKNOWN
  5. ASPIRIN [Concomitant]
     Dosage: UNK, UNKNOWN

REACTIONS (1)
  - VASCULAR GRAFT [None]
